FAERS Safety Report 17279568 (Version 1)
Quarter: 2020Q1

REPORT INFORMATION
  Report Type: Spontaneous
  Country: DE (occurrence: DE)
  Receive Date: 20200116
  Receipt Date: 20200116
  Transmission Date: 20200409
  Serious: Yes (Death, Other)
  Sender: FDA-Public Use
  Company Number: DE-MYLANLABS-2020M1005049

PATIENT
  Age: 80 Year
  Sex: Male

DRUGS (5)
  1. AMIODARONE [Suspect]
     Active Substance: AMIODARONE
     Indication: PRODUCT USED FOR UNKNOWN INDICATION
     Dosage: UNK
     Dates: start: 2012, end: 2016
  2. AMIODURA 200 MG TABLETTEN [Suspect]
     Active Substance: AMIODARONE HYDROCHLORIDE
     Indication: PRODUCT USED FOR UNKNOWN INDICATION
     Dosage: UNK
     Dates: start: 2012, end: 2016
  3. CELECOXIB. [Concomitant]
     Active Substance: CELECOXIB
     Dosage: UNK
  4. SIMVASTATIN - 1 A PHARMA [Concomitant]
     Dosage: UNK
  5. CORDAREX [Concomitant]
     Active Substance: AMIODARONE
     Dosage: UNK
     Dates: start: 2012, end: 2016

REACTIONS (4)
  - Jaundice [Unknown]
  - Hepatic cancer [Fatal]
  - Bile duct cancer [Fatal]
  - Muscle disorder [Unknown]
